FAERS Safety Report 6381593-4 (Version None)
Quarter: 2009Q3

REPORT INFORMATION
  Report Type: 
  Country: None (occurrence: None)
  Receive Date: 20090925
  Receipt Date: 20090915
  Transmission Date: 20100115
  Serious: Yes (Death, Hospitalization)
  Sender: FDA-Public Use
  Company Number: A-CH2009-24065

PATIENT
  Age: 78 Year
  Sex: Female
  Weight: 75 kg

DRUGS (7)
  1. TRACLEER [Suspect]
     Indication: PULMONARY HYPERTENSION
     Dosage: 125 MG, BID, ORAL; 62.5 MG, BID, ORAL
     Route: 048
     Dates: start: 20030303, end: 20030330
  2. TRACLEER [Suspect]
     Indication: PULMONARY HYPERTENSION
     Dosage: 125 MG, BID, ORAL; 62.5 MG, BID, ORAL
     Route: 048
     Dates: start: 20030331, end: 20090130
  3. ACENOCOUMAROL (ACENOCOUMAROL) [Concomitant]
  4. SPIRONOLACTONE [Concomitant]
  5. FUROSEMIDE [Concomitant]
  6. THYRAX (LEVOTHYROXINE) [Concomitant]
  7. VERAPAMIL [Concomitant]

REACTIONS (4)
  - AORTIC VALVE STENOSIS [None]
  - CARDIAC FAILURE [None]
  - PNEUMONIA [None]
  - RIGHT VENTRICULAR FAILURE [None]
